FAERS Safety Report 19379643 (Version 4)
Quarter: 2021Q4

REPORT INFORMATION
  Report Type: Spontaneous
  Country: US (occurrence: US)
  Receive Date: 20210607
  Receipt Date: 20211018
  Transmission Date: 20220303
  Serious: Yes (Hospitalization, Other)
  Sender: FDA-Public Use
  Company Number: US-SA-SAC20210603001463

PATIENT
  Sex: Male

DRUGS (21)
  1. FABRAZYME [Suspect]
     Active Substance: AGALSIDASE BETA
     Indication: Fabry^s disease
     Dosage: 120 MG, QOW
     Route: 042
     Dates: start: 20191224
  2. HEPARIN [Concomitant]
     Active Substance: HEPARIN SODIUM
  3. SODIUM CHLORIDE [Concomitant]
     Active Substance: SODIUM CHLORIDE
  4. STERILE WATER [Concomitant]
     Active Substance: WATER
  5. EPINEPHRINE [Concomitant]
     Active Substance: EPINEPHRINE
  6. LOSARTAN [Concomitant]
     Active Substance: LOSARTAN
  7. MEMANTINE [Concomitant]
     Active Substance: MEMANTINE
  8. DONEPEZIL [Concomitant]
     Active Substance: DONEPEZIL
  9. CELEBREX [Concomitant]
     Active Substance: CELECOXIB
  10. LIPITOR [Concomitant]
     Active Substance: ATORVASTATIN CALCIUM
  11. ASPIRIN [Concomitant]
     Active Substance: ASPIRIN
  12. LEXAPRO [Concomitant]
     Active Substance: ESCITALOPRAM OXALATE
  13. NAMENDA [Concomitant]
     Active Substance: MEMANTINE HYDROCHLORIDE
  14. AMANTADINE. [Concomitant]
     Active Substance: AMANTADINE HYDROCHLORIDE
  15. TRAZODONE [Concomitant]
     Active Substance: TRAZODONE HYDROCHLORIDE
  16. PRILOSEC [Concomitant]
     Active Substance: OMEPRAZOLE MAGNESIUM
  17. NIFEDIPINE [Concomitant]
     Active Substance: NIFEDIPINE
  18. AMPHETAMINE [Concomitant]
     Active Substance: AMPHETAMINE
     Dosage: UNK
  19. METFORMIN [Concomitant]
     Active Substance: METFORMIN HYDROCHLORIDE
     Dosage: UNK
  20. ARICEPT [Concomitant]
     Active Substance: DONEPEZIL HYDROCHLORIDE
     Dosage: UNK
  21. CYANOCOBALAMIN [Concomitant]
     Active Substance: CYANOCOBALAMIN

REACTIONS (5)
  - Hepatic failure [Unknown]
  - Cholecystectomy [Unknown]
  - Device issue [Unknown]
  - Hypoaesthesia [Recovered/Resolved]
  - Paraesthesia [Unknown]
